FAERS Safety Report 5095573-2 (Version None)
Quarter: 2006Q3

REPORT INFORMATION
  Report Type: 
  Country: None (occurrence: None)
  Receive Date: 20060901
  Receipt Date: 20060822
  Transmission Date: 20061208
  Serious: Yes (Hospitalization)
  Sender: FDA-Public Use
  Company Number: DE-ABBOTT-06P-062-0341799-00

PATIENT
  Sex: Female
  Weight: 82.4 kg

DRUGS (6)
  1. REDUCTIL 10MG [Suspect]
     Indication: OBESITY
     Route: 048
     Dates: start: 20020926, end: 20030108
  2. REDUCTIL 10MG [Suspect]
     Dates: start: 20030109, end: 20030826
  3. REDUCTIL 10MG [Suspect]
  4. MOBLOC [Concomitant]
     Indication: HYPERTENSION
     Route: 048
  5. L-THYROXIN [Concomitant]
     Indication: DRUG USE FOR UNKNOWN INDICATION
     Route: 048
  6. PANTOPRAZOLE SODIUM [Concomitant]
     Indication: PROPHYLAXIS AGAINST GASTROINTESTINAL ULCER
     Route: 048

REACTIONS (3)
  - ANGINA PECTORIS [None]
  - CORONARY ARTERY DISEASE [None]
  - SPINAL DISORDER [None]
